FAERS Safety Report 10022358 (Version 2)
Quarter: 2014Q1

REPORT INFORMATION
  Report Type: Spontaneous
  Country: US (occurrence: US)
  Receive Date: 20140319
  Receipt Date: 20140319
  Transmission Date: 20141002
  Serious: No
  Sender: FDA-Public Use
  Company Number: US-ASTRAZENECA-2013SE91740

PATIENT
  Age: 67 Year
  Sex: Female
  Weight: 69.9 kg

DRUGS (20)
  1. TOPROL-XL [Suspect]
     Indication: SUPRAVENTRICULAR EXTRASYSTOLES
     Route: 048
     Dates: start: 20080225
  2. TOPROL-XL [Suspect]
     Indication: VENTRICULAR EXTRASYSTOLES
     Route: 048
     Dates: start: 20080225
  3. TOPROL-XL [Suspect]
     Indication: ARRHYTHMIA PROPHYLAXIS
     Route: 048
     Dates: start: 20080225
  4. TOPROL-XL [Suspect]
     Indication: PALPITATIONS
     Route: 048
     Dates: start: 20080225
  5. TOPROL-XL [Suspect]
     Indication: SUPRAVENTRICULAR EXTRASYSTOLES
     Dosage: GENERIC
     Route: 048
  6. TOPROL-XL [Suspect]
     Indication: VENTRICULAR EXTRASYSTOLES
     Dosage: GENERIC
     Route: 048
  7. TOPROL-XL [Suspect]
     Indication: ARRHYTHMIA PROPHYLAXIS
     Dosage: GENERIC
     Route: 048
  8. TOPROL-XL [Suspect]
     Indication: PALPITATIONS
     Dosage: GENERIC
     Route: 048
  9. TOPROL-XL [Suspect]
     Indication: SUPRAVENTRICULAR EXTRASYSTOLES
     Route: 048
  10. TOPROL-XL [Suspect]
     Indication: VENTRICULAR EXTRASYSTOLES
     Route: 048
  11. TOPROL-XL [Suspect]
     Indication: ARRHYTHMIA PROPHYLAXIS
     Route: 048
  12. TOPROL-XL [Suspect]
     Indication: PALPITATIONS
     Route: 048
  13. TOPROL-XL [Suspect]
     Indication: SUPRAVENTRICULAR EXTRASYSTOLES
     Route: 048
  14. TOPROL-XL [Suspect]
     Indication: VENTRICULAR EXTRASYSTOLES
     Route: 048
  15. TOPROL-XL [Suspect]
     Indication: ARRHYTHMIA PROPHYLAXIS
     Route: 048
  16. TOPROL-XL [Suspect]
     Indication: PALPITATIONS
     Route: 048
  17. CYMBALTA [Suspect]
     Indication: FIBROMYALGIA
     Route: 065
  18. WELCHOL [Concomitant]
     Indication: GASTROINTESTINAL DISORDER
  19. SYNTHROID [Concomitant]
     Indication: AUTOIMMUNE THYROIDITIS
  20. AMBIEN [Concomitant]
     Indication: INSOMNIA

REACTIONS (13)
  - General symptom [Unknown]
  - Cardiac flutter [Unknown]
  - Weight decreased [Unknown]
  - Post gastric surgery syndrome [Unknown]
  - Flushing [Unknown]
  - Stress [Unknown]
  - Chest discomfort [Unknown]
  - Palpitations [Unknown]
  - Chest pain [Recovering/Resolving]
  - Supraventricular extrasystoles [Unknown]
  - Atrial tachycardia [Unknown]
  - Drug ineffective [Unknown]
  - Intentional drug misuse [Unknown]
